FAERS Safety Report 7589943-8 (Version None)
Quarter: 2011Q3

REPORT INFORMATION
  Report Type: 
  Country: None (occurrence: None)
  Receive Date: 20110705
  Receipt Date: 20110613
  Transmission Date: 20111222
  Serious: Yes (Hospitalization)
  Sender: FDA-Public Use
  Company Number: A0782597A

PATIENT
  Sex: Female

DRUGS (1)
  1. AVANDIA [Suspect]
     Indication: DIABETES MELLITUS
     Route: 048
     Dates: start: 20010101, end: 20040101

REACTIONS (7)
  - CAROTID ARTERY DISEASE [None]
  - CEREBROVASCULAR ACCIDENT [None]
  - HEART INJURY [None]
  - MYOCARDIAL INFARCTION [None]
  - TRANSIENT ISCHAEMIC ATTACK [None]
  - CARDIAC DISORDER [None]
  - INTRACARDIAC THROMBUS [None]
